FAERS Safety Report 12889104 (Version 1)
Quarter: 2016Q4

REPORT INFORMATION
  Report Type: Spontaneous
  Country: US (occurrence: US)
  Receive Date: 20161027
  Receipt Date: 20161027
  Transmission Date: 20170207
  Serious: Yes (Other)
  Sender: FDA-Public Use
  Company Number: US-PFIZER INC-2016491983

PATIENT
  Age: 21 Year
  Sex: Female

DRUGS (3)
  1. TRAMADOL HCL [Concomitant]
     Active Substance: TRAMADOL HYDROCHLORIDE
  2. XALKORI [Suspect]
     Active Substance: CRIZOTINIB
     Indication: MALIGNANT CONNECTIVE TISSUE NEOPLASM
     Dosage: 250 MG, 2X/DAY, (TAKE 1 CAPSULE BY MOUTH TWICE A DAY)
     Route: 048
  3. MELOXICAM. [Concomitant]
     Active Substance: MELOXICAM

REACTIONS (3)
  - Hepatitis [Unknown]
  - Product use issue [Unknown]
  - Pneumonitis [Unknown]
